FAERS Safety Report 5219918-5 (Version None)
Quarter: 2007Q1

REPORT INFORMATION
  Report Type: 
  Country: None (occurrence: None)
  Receive Date: 20070125
  Receipt Date: 20070118
  Transmission Date: 20070707
  Serious: Yes (Congenital Anomaly, Other)
  Sender: FDA-Public Use
  Company Number: US-PFIZER INC-2007004967

PATIENT
  Sex: Female

DRUGS (2)
  1. MISOPROSTOL [Suspect]
     Indication: ABORTION INDUCED
     Route: 064
  2. METHOTREXATE [Suspect]
     Indication: ABORTION INDUCED
     Route: 064

REACTIONS (9)
  - CLINODACTYLY [None]
  - DRUG EXPOSURE DURING PREGNANCY [None]
  - DYSKINESIA [None]
  - DYSMORPHISM [None]
  - FOOT DEFORMITY [None]
  - GROWTH RETARDATION [None]
  - HAIR GROWTH ABNORMAL [None]
  - JOINT HYPEREXTENSION [None]
  - MICROCEPHALY [None]
